FAERS Safety Report 9568064 (Version 1)
Quarter: 2013Q3

REPORT INFORMATION
  Report Type: Spontaneous
  Country: US (occurrence: US)
  Receive Date: 20130930
  Receipt Date: 20130930
  Transmission Date: 20140515
  Serious: Yes (Other)
  Sender: FDA-Public Use
  Company Number: US-AMGEN-USASP2013054372

PATIENT
  Age: 75 Year
  Sex: Male

DRUGS (2)
  1. ENBREL [Suspect]
     Indication: PSORIATIC ARTHROPATHY
     Dosage: 50 MG, QWK
     Route: 065
     Dates: start: 20040301, end: 20130714
  2. ENBREL [Suspect]
     Indication: PSORIASIS

REACTIONS (7)
  - Tooth abscess [Recovered/Resolved]
  - Influenza [Recovered/Resolved]
  - Wound [Recovered/Resolved]
  - Rhinorrhoea [Recovered/Resolved]
  - Nasal congestion [Recovered/Resolved]
  - Cough [Recovered/Resolved]
  - Limb injury [Recovered/Resolved]
